FAERS Safety Report 23638005 (Version 3)
Quarter: 2025Q3

REPORT INFORMATION
  Report Type: Report from Study
  Country: US (occurrence: US)
  Receive Date: 20240315
  Receipt Date: 20250905
  Transmission Date: 20251021
  Serious: No
  Sender: TAKEDA
  Company Number: US-TAKEDA-2024TUS023479

PATIENT
  Sex: Female
  Weight: 47 kg

DRUGS (21)
  1. HUMAN IMMUNOGLOBULIN G [Suspect]
     Active Substance: HUMAN IMMUNOGLOBULIN G
     Indication: Hypogammaglobulinaemia
     Dosage: 40 GRAM, Q4WEEKS
  2. HUMAN IMMUNOGLOBULIN G [Suspect]
     Active Substance: HUMAN IMMUNOGLOBULIN G
     Indication: Immunodeficiency common variable
     Dosage: UNK UNK, Q4WEEKS
     Dates: start: 2000
  3. STERILE WATER FOR INJECTION [Concomitant]
     Active Substance: WATER
  4. VITAMIN C [Concomitant]
     Active Substance: ASCORBIC ACID
  5. PHENTERMINE HYDROCHLORIDE [Concomitant]
     Active Substance: PHENTERMINE HYDROCHLORIDE
  6. ALIGN [Concomitant]
     Active Substance: BIFIDOBACTERIUM LONGUM SUBSP. INFANTIS
  7. PANTOPRAZOLE SODIUM [Concomitant]
     Active Substance: PANTOPRAZOLE SODIUM
  8. ARMOUR THYROID [Concomitant]
     Active Substance: THYROID, PORCINE
  9. Caltrate + d plus [Concomitant]
  10. DOXYCYCLINE HYCLATE [Concomitant]
     Active Substance: DOXYCYCLINE HYCLATE
  11. BIOTIN [Concomitant]
     Active Substance: BIOTIN
  12. BUPROPION [Concomitant]
     Active Substance: BUPROPION
  13. VITAMIN B [Concomitant]
     Active Substance: VITAMIN B
  14. PROGESTERONE [Concomitant]
     Active Substance: PROGESTERONE
  15. PRASTERONE [Concomitant]
     Active Substance: PRASTERONE
  16. XIIDRA [Concomitant]
     Active Substance: LIFITEGRAST
  17. WELLBUTRIN [Concomitant]
     Active Substance: BUPROPION HYDROCHLORIDE
     Indication: Depression
     Dosage: 300 GRAM, QD
  18. NP THYROID [Concomitant]
     Active Substance: LEVOTHYROXINE\LIOTHYRONINE
     Indication: Hypothyroidism
     Dosage: 30 GRAM, QD
  19. SPIRONOLACTONE [Concomitant]
     Active Substance: SPIRONOLACTONE
  20. PANTOPRAZOLE [Concomitant]
     Active Substance: PANTOPRAZOLE
     Indication: Gastrooesophageal reflux disease
     Dosage: 40 GRAM, QD
  21. PHENTERMINE [Concomitant]
     Active Substance: PHENTERMINE
     Dosage: 37.5 GRAM, QD
     Dates: end: 202410

REACTIONS (3)
  - Weight increased [Recovered/Resolved]
  - Headache [Unknown]
  - Nausea [Unknown]
